FAERS Safety Report 18695336 (Version 7)
Quarter: 2023Q2

REPORT INFORMATION
  Report Type: Spontaneous
  Country: US (occurrence: US)
  Receive Date: 20210104
  Receipt Date: 20230629
  Transmission Date: 20230721
  Serious: Yes (Other)
  Sender: FDA-Public Use
  Company Number: US-PFIZER INC-2020490394

PATIENT
  Age: 84 Year
  Sex: Female

DRUGS (2)
  1. PREMARIN [Suspect]
     Active Substance: ESTROGENS, CONJUGATED
     Dosage: THREE TIMES A WEEK, NDC NUMBER OF PREMARIN: 0046-0872-21
     Route: 067
  2. PREMARIN [Suspect]
     Active Substance: ESTROGENS, CONJUGATED
     Dosage: APPLY A PEA SIZED AMOUNT VIA FINGERTIP THREE TIMES A WEEK
     Route: 067

REACTIONS (21)
  - Urinary tract infection [Unknown]
  - Urinary tract infection bacterial [Unknown]
  - Vulvovaginal pruritus [Unknown]
  - Macular degeneration [Unknown]
  - Cerebrovascular accident [Unknown]
  - Cystitis [Unknown]
  - Diarrhoea [Unknown]
  - Limb discomfort [Unknown]
  - Fear of death [Unknown]
  - Malaise [Unknown]
  - Gastrointestinal pain [Unknown]
  - Dry eye [Unknown]
  - Constipation [Unknown]
  - Dehydration [Unknown]
  - Visual impairment [Unknown]
  - Hypersensitivity [Unknown]
  - Back pain [Unknown]
  - Speech disorder [Unknown]
  - Peripheral swelling [Unknown]
  - Off label use [Unknown]
  - Wrong technique in product usage process [Unknown]
